FAERS Safety Report 8826119 (Version 1)
Quarter: 2012Q4

REPORT INFORMATION
  Report Type: 
  Country: IE (occurrence: IE)
  Receive Date: 20121008
  Receipt Date: 20121008
  Transmission Date: 20130627
  Serious: Yes (Other)
  Sender: FDA-Public Use
  Company Number: IE-COVIDIEN/TYCO HEALTHCARE/MALLINCKRODT-T201203558

PATIENT
  Age: 45 Year
  Sex: Male

DRUGS (3)
  1. METHADOSE [Suspect]
     Indication: DRUG WITHDRAWAL MAINTENANCE THERAPY
     Dosage: 80 mg, qd
  2. METHADOSE [Suspect]
     Dosage: UNK
  3. HEROIN [Suspect]
     Dosage: UNK

REACTIONS (1)
  - Hypogonadism [Recovering/Resolving]
